FAERS Safety Report 14813871 (Version 1)
Quarter: 2018Q2

REPORT INFORMATION
  Report Type: Report from Study
  Country: BG (occurrence: BG)
  Receive Date: 20180426
  Receipt Date: 20180426
  Transmission Date: 20180711
  Serious: Yes (Death, Other)
  Sender: FDA-Public Use
  Company Number: BG-INCYTE CORPORATION-2018IN003604

PATIENT

DRUGS (5)
  1. MILURIT [Concomitant]
     Active Substance: ALLOPURINOL
     Indication: HYPERURICAEMIA
     Dosage: 300 MG, QD
     Route: 048
  2. ASPIRIN. [Concomitant]
     Active Substance: ASPIRIN
     Indication: PRODUCT USED FOR UNKNOWN INDICATION
     Dosage: UNK
     Route: 065
  3. JAKAVI [Suspect]
     Active Substance: RUXOLITINIB
     Indication: MYELOFIBROSIS
     Dosage: 15 MG, BID
     Route: 048
     Dates: start: 201709, end: 20180408
  4. LANSOPROL [Concomitant]
     Active Substance: LANSOPRAZOLE
     Indication: GASTROINTESTINAL DISORDER
     Dosage: 30 MG, QD
     Route: 048
  5. DICLOFENAC DUO [Suspect]
     Active Substance: DICLOFENAC SODIUM
     Indication: BACK PAIN
     Dosage: 150 MG, QD
     Route: 048

REACTIONS (11)
  - Red blood cell count decreased [Unknown]
  - Rectal polyp [Unknown]
  - Colon cancer [Unknown]
  - Death [Fatal]
  - White blood cell count increased [Unknown]
  - Second primary malignancy [Unknown]
  - Haematocrit decreased [Unknown]
  - Rectal haemorrhage [Unknown]
  - Haemoglobin decreased [Unknown]
  - Large intestine polyp [Unknown]
  - Mean cell haemoglobin concentration increased [Unknown]

NARRATIVE: CASE EVENT DATE: 20180408
